FAERS Safety Report 12370625 (Version 1)
Quarter: 2016Q2

REPORT INFORMATION
  Report Type: Spontaneous
  Country: US (occurrence: None)
  Receive Date: 20160513
  Receipt Date: 20160513
  Transmission Date: 20160815
  Serious: No
  Sender: FDA-Public Use
  Company Number: None

PATIENT
  Age: 82 Year
  Sex: Female

DRUGS (1)
  1. INTRON A [Suspect]
     Active Substance: INTERFERON ALFA-2B
     Indication: POLYCYTHAEMIA VERA
     Dosage: 1.68MU (0.28ML) TIW INJ.
     Dates: start: 201604

REACTIONS (4)
  - Headache [None]
  - Diarrhoea [None]
  - Vomiting [None]
  - Pain [None]

NARRATIVE: CASE EVENT DATE: 2016
